FAERS Safety Report 5814516-4 (Version None)
Quarter: 2008Q3

REPORT INFORMATION
  Report Type: 
  Country: None (occurrence: None)
  Receive Date: 20080718
  Receipt Date: 20071031
  Transmission Date: 20090109
  Serious: Yes (Other)
  Sender: FDA-Public Use
  Company Number: US-KINGPHARMUSA00001-K200701421

PATIENT

DRUGS (2)
  1. LEVOXYL [Suspect]
     Indication: HYPOTHYROIDISM
     Dosage: 88 MCG, QD
     Route: 048
     Dates: start: 20020101
  2. LEVOXYL [Suspect]
     Dosage: 176 MCG, SINGLE
     Route: 048
     Dates: start: 20071030, end: 20071030

REACTIONS (9)
  - CONVULSION [None]
  - DRUG DOSE OMISSION [None]
  - DYSKINESIA [None]
  - EXCESSIVE EYE BLINKING [None]
  - FATIGUE [None]
  - FEELING ABNORMAL [None]
  - HEAD DISCOMFORT [None]
  - INCORRECT DOSE ADMINISTERED [None]
  - TREMOR [None]
